FAERS Safety Report 25173566 (Version 1)
Quarter: 2025Q2

REPORT INFORMATION
  Report Type: Report from Study
  Country: US (occurrence: US)
  Receive Date: 20250408
  Receipt Date: 20250408
  Transmission Date: 20250717
  Serious: Yes (Other)
  Sender: TAKEDA
  Company Number: US-TAKEDA-US201945356

PATIENT
  Age: 11 Year
  Sex: Male

DRUGS (4)
  1. ICATIBANT [Suspect]
     Active Substance: ICATIBANT ACETATE
     Indication: Immune system disorder
  2. ICATIBANT [Suspect]
     Active Substance: ICATIBANT ACETATE
  3. TAKHZYRO [Suspect]
     Active Substance: LANADELUMAB-FLYO
     Indication: Immune system disorder
  4. TAKHZYRO [Suspect]
     Active Substance: LANADELUMAB-FLYO
     Dosage: 300 MILLIGRAM, Q2WEEKS

REACTIONS (5)
  - Ankle fracture [Unknown]
  - Hereditary angioedema [Recovering/Resolving]
  - Puberty [Unknown]
  - Product administered to patient of inappropriate age [Unknown]
  - Injection site pain [Unknown]

NARRATIVE: CASE EVENT DATE: 20210811
